FAERS Safety Report 13322953 (Version 1)
Quarter: 2017Q1

REPORT INFORMATION
  Report Type: Spontaneous
  Country: CA (occurrence: CA)
  Receive Date: 20170310
  Receipt Date: 20170310
  Transmission Date: 20170428
  Serious: Yes (Other)
  Sender: FDA-Public Use
  Company Number: CA-TEVA-748358ACC

PATIENT
  Age: 70 Year
  Sex: Male
  Weight: 64 kg

DRUGS (3)
  1. VALSARTAN AND HYDROCHLOROTHIAZIDE [Suspect]
     Active Substance: HYDROCHLOROTHIAZIDE\VALSARTAN
     Indication: HYPERTENSION
     Route: 048
  2. VIAGRA [Concomitant]
     Active Substance: SILDENAFIL CITRATE
  3. DALACIN C [Concomitant]
     Active Substance: CLINDAMYCIN PHOSPHATE

REACTIONS (3)
  - Gastrointestinal disorder [Recovered/Resolved]
  - Blood pressure inadequately controlled [Recovered/Resolved]
  - Product substitution issue [Recovered/Resolved]
